FAERS Safety Report 5256250-8 (Version None)
Quarter: 2007Q1

REPORT INFORMATION
  Report Type: 
  Country: None (occurrence: None)
  Receive Date: 20070302
  Receipt Date: 20070302
  Transmission Date: 20070707
  Serious: Yes (Hospitalization)
  Sender: FDA-Public Use
  Company Number: None

PATIENT
  Sex: Male
  Weight: 77.1115 kg

DRUGS (4)
  1. LARIAM [Suspect]
     Indication: FOREIGN TRAVEL
     Dosage: 1 PILL 1/WEEK PO
     Route: 048
     Dates: start: 20061002, end: 20061113
  2. LARIAM [Suspect]
     Indication: MALARIA PROPHYLAXIS
     Dosage: 1 PILL 1/WEEK PO
     Route: 048
     Dates: start: 20061002, end: 20061113
  3. LARIAM [Suspect]
     Indication: FOREIGN TRAVEL
     Dosage: 1 PILL 1/WEEK PO
     Route: 048
     Dates: start: 20061230, end: 20070217
  4. LARIAM [Suspect]
     Indication: MALARIA PROPHYLAXIS
     Dosage: 1 PILL 1/WEEK PO
     Route: 048
     Dates: start: 20061230, end: 20070217

REACTIONS (1)
  - PSYCHOTIC DISORDER [None]
